FAERS Safety Report 5341636-3 (Version None)
Quarter: 2007Q2

REPORT INFORMATION
  Report Type: 
  Country: None (occurrence: None)
  Receive Date: 20070601
  Receipt Date: 20070521
  Transmission Date: 20071010
  Serious: Yes (Other)
  Sender: FDA-Public Use
  Company Number: US-BAYER-200711651BWH

PATIENT

DRUGS (1)
  1. TRASYLOL [Suspect]
     Indication: DRUG USE FOR UNKNOWN INDICATION
     Dates: start: 20070501

REACTIONS (3)
  - BLOOD PRESSURE DECREASED [None]
  - HYPERSENSITIVITY [None]
  - NERVOUS SYSTEM DISORDER [None]
